FAERS Safety Report 6207098-9 (Version None)
Quarter: 2009Q2

REPORT INFORMATION
  Report Type: 
  Country: None (occurrence: None)
  Receive Date: 20090528
  Receipt Date: 20090518
  Transmission Date: 20091009
  Serious: Yes (Hospitalization, Other)
  Sender: FDA-Public Use
  Company Number: CH-ELI_LILLY_AND_COMPANY-CH200905003966

PATIENT
  Age: 58 Year
  Sex: Male
  Weight: 59 kg

DRUGS (19)
  1. ZYPREXA [Suspect]
     Dosage: 20 MG, EACH EVENING
     Route: 048
     Dates: start: 20081120, end: 20090408
  2. ZYPREXA [Interacting]
     Dosage: 10 MG, DAILY (1/D)
     Route: 048
     Dates: start: 20090409, end: 20090413
  3. ZYPREXA [Interacting]
     Dosage: 5 MG, DAILY (1/D)
     Route: 048
     Dates: start: 20090414, end: 20090415
  4. SAROTEN [Interacting]
     Dosage: 50 MG, DAILY (1/D)
     Route: 048
     Dates: end: 20081118
  5. SAROTEN [Interacting]
     Dosage: 75 MG, DAILY (1/D)
     Route: 048
     Dates: start: 20081119, end: 20081207
  6. SAROTEN [Interacting]
     Dosage: 100 MG, DAILY (1/D)
     Route: 048
     Dates: start: 20081208
  7. SERESTA [Interacting]
     Dosage: 45 MG, DAILY (1/D)
     Route: 048
  8. NEXIUM [Concomitant]
     Dosage: 80 MG, DAILY (1/D)
     Route: 048
  9. PRADIF [Concomitant]
     Dosage: 400 UG, DAILY (1/D)
     Route: 048
  10. SOLIAN [Concomitant]
     Dosage: 400 MG, DAILY (1/D)
     Route: 048
     Dates: start: 20090303, end: 20090319
  11. SOLIAN [Concomitant]
     Dosage: 300 MG, DAILY (1/D)
     Route: 048
     Dates: start: 20090320, end: 20090324
  12. SOLIAN [Concomitant]
     Dosage: 200 MG, DAILY (1/D)
     Route: 048
     Dates: start: 20090325, end: 20090326
  13. SOLIAN [Concomitant]
     Dosage: 100 MG, DAILY (1/D)
     Route: 048
     Dates: start: 20090327
  14. INDERAL [Concomitant]
     Dosage: 10 MG, UNK
  15. FOLIC ACID [Concomitant]
     Dosage: 5 MG, UNK
  16. EXCIPIAL U LIPOLOTIO [Concomitant]
     Route: 061
  17. DIFLUCAN [Concomitant]
     Dosage: 200 MG, UNK
  18. NOZINAN [Concomitant]
     Dosage: 25 MG, UNK
  19. AKINETON /00079501/ [Concomitant]
     Dosage: 2 MG, UNK

REACTIONS (13)
  - BENIGN PROSTATIC HYPERPLASIA [None]
  - CONSTIPATION [None]
  - EXTRAPYRAMIDAL DISORDER [None]
  - HIATUS HERNIA [None]
  - NAUSEA [None]
  - NORMOCHROMIC NORMOCYTIC ANAEMIA [None]
  - OESOPHAGEAL CANDIDIASIS [None]
  - POTENTIATING DRUG INTERACTION [None]
  - REFLUX OESOPHAGITIS [None]
  - RENAL FAILURE CHRONIC [None]
  - VITAMIN B12 DEFICIENCY [None]
  - VOMITING [None]
  - WEIGHT DECREASED [None]
